FAERS Safety Report 13412758 (Version 2)
Quarter: 2018Q1

REPORT INFORMATION
  Report Type: Spontaneous
  Country: US (occurrence: US)
  Receive Date: 20170406
  Receipt Date: 20180119
  Transmission Date: 20180508
  Serious: No
  Sender: FDA-Public Use
  Company Number: US-JNJFOC-20170310806

PATIENT
  Sex: Male

DRUGS (20)
  1. RISPERDAL [Suspect]
     Active Substance: RISPERIDONE
     Indication: AUTISM SPECTRUM DISORDER
     Dosage: VARYING DOSES 0.25, 0.5,01, 02 MG AND FREQUENCIES
     Route: 048
     Dates: start: 19981109, end: 20020619
  2. RISPERDAL [Suspect]
     Active Substance: RISPERIDONE
     Indication: FRAGILE X SYNDROME
     Route: 048
     Dates: start: 20021230, end: 20050829
  3. RISPERDAL [Suspect]
     Active Substance: RISPERIDONE
     Indication: AUTISM SPECTRUM DISORDER
     Route: 048
     Dates: start: 20070117, end: 20090902
  4. RISPERDAL [Suspect]
     Active Substance: RISPERIDONE
     Indication: AUTISM SPECTRUM DISORDER
     Route: 048
     Dates: start: 20021230, end: 20050829
  5. RISPERDAL [Suspect]
     Active Substance: RISPERIDONE
     Indication: FRAGILE X SYNDROME
     Dosage: 01 CUBIC CENTIMETER (CC)
     Route: 048
     Dates: start: 20000417
  6. RISPERIDONE. [Suspect]
     Active Substance: RISPERIDONE
     Indication: FRAGILE X SYNDROME
     Route: 048
     Dates: start: 20100208
  7. RISPERIDONE. [Suspect]
     Active Substance: RISPERIDONE
     Indication: FRAGILE X SYNDROME
     Route: 048
     Dates: start: 20131120, end: 20160512
  8. RISPERDAL [Suspect]
     Active Substance: RISPERIDONE
     Indication: FRAGILE X SYNDROME
     Route: 048
     Dates: start: 20060814
  9. RISPERDAL [Suspect]
     Active Substance: RISPERIDONE
     Indication: FRAGILE X SYNDROME
     Route: 048
     Dates: start: 20070117, end: 20090902
  10. RISPERDAL [Suspect]
     Active Substance: RISPERIDONE
     Indication: FRAGILE X SYNDROME
     Route: 048
     Dates: start: 20130712, end: 20131010
  11. RISPERDAL [Suspect]
     Active Substance: RISPERIDONE
     Indication: AUTISM SPECTRUM DISORDER
     Route: 048
     Dates: start: 20130712, end: 20131010
  12. RISPERIDONE. [Suspect]
     Active Substance: RISPERIDONE
     Indication: AUTISM SPECTRUM DISORDER
     Route: 048
     Dates: start: 20131120, end: 20160512
  13. RISPERIDONE. [Suspect]
     Active Substance: RISPERIDONE
     Indication: AUTISM SPECTRUM DISORDER
     Route: 048
     Dates: start: 20100208
  14. RISPERIDONE. [Suspect]
     Active Substance: RISPERIDONE
     Indication: FRAGILE X SYNDROME
     Dosage: VARYING DOSES 01, 02, 03 MG
     Route: 048
     Dates: start: 20091021, end: 20130611
  15. RISPERDAL [Suspect]
     Active Substance: RISPERIDONE
     Indication: AUTISM SPECTRUM DISORDER
     Route: 048
     Dates: start: 20100304, end: 20100812
  16. RISPERDAL [Suspect]
     Active Substance: RISPERIDONE
     Indication: FRAGILE X SYNDROME
     Route: 048
     Dates: start: 20100304, end: 20100812
  17. RISPERDAL [Suspect]
     Active Substance: RISPERIDONE
     Indication: FRAGILE X SYNDROME
     Dosage: VARYING DOSES 0.25, 0.5,01, 02 MG AND FREQUENCIES
     Route: 048
     Dates: start: 19981109, end: 20020619
  18. RISPERDAL [Suspect]
     Active Substance: RISPERIDONE
     Indication: AUTISM SPECTRUM DISORDER
     Dosage: 01 CUBIC CENTIMETER (CC)
     Route: 048
     Dates: start: 20000417
  19. RISPERDAL [Suspect]
     Active Substance: RISPERIDONE
     Indication: AUTISM SPECTRUM DISORDER
     Route: 048
     Dates: start: 20060814
  20. RISPERIDONE. [Suspect]
     Active Substance: RISPERIDONE
     Indication: AUTISM SPECTRUM DISORDER
     Dosage: VARYING DOSES 01, 02, 03 MG
     Route: 048
     Dates: start: 20091021, end: 20130611

REACTIONS (3)
  - Emotional disorder [Unknown]
  - Drug ineffective [Unknown]
  - Gynaecomastia [Unknown]
